FAERS Safety Report 20855877 (Version 1)
Quarter: 2022Q2

REPORT INFORMATION
  Report Type: Spontaneous
  Country: FI (occurrence: FI)
  Receive Date: 20220520
  Receipt Date: 20220520
  Transmission Date: 20220721
  Serious: Yes (Other)
  Sender: FDA-Public Use
  Company Number: FI-ALLERGAN-2216543US

PATIENT
  Sex: Male

DRUGS (1)
  1. OZURDEX [Suspect]
     Active Substance: DEXAMETHASONE
     Indication: Diabetic retinal oedema
     Dosage: 0.7 MG, SINGLE
     Route: 031

REACTIONS (1)
  - Cytomegalovirus chorioretinitis [Unknown]

NARRATIVE: CASE EVENT DATE: 20170101
